FAERS Safety Report 19015335 (Version 1)
Quarter: 2021Q1

REPORT INFORMATION
  Report Type: Spontaneous
  Country: DE (occurrence: DE)
  Receive Date: 20210317
  Receipt Date: 20210317
  Transmission Date: 20210420
  Serious: Yes (Death, Life-Threatening, Hospitalization, Other)
  Sender: FDA-Public Use
  Company Number: DE-GRANULES-DE-2021GRALIT00191

PATIENT
  Age: 61 Year
  Sex: Female

DRUGS (8)
  1. BISOPROLOL AML [Suspect]
     Active Substance: AMLODIPINE\BISOPROLOL
     Indication: PRODUCT USED FOR UNKNOWN INDICATION
     Dosage: 90
     Route: 065
  2. METFORMIN HCL [Suspect]
     Active Substance: METFORMIN HYDROCHLORIDE
     Indication: PRODUCT USED FOR UNKNOWN INDICATION
     Route: 065
  3. AMLODIPINE [Suspect]
     Active Substance: AMLODIPINE BESYLATE
     Indication: PRODUCT USED FOR UNKNOWN INDICATION
     Route: 065
  4. EPINEPHRINE. [Interacting]
     Active Substance: EPINEPHRINE
     Indication: CIRCULATORY COLLAPSE
     Dosage: 1 MICROG/KG/MIN
     Route: 065
  5. GLUCAGON. [Interacting]
     Active Substance: GLUCAGON
     Indication: CIRCULATORY COLLAPSE
     Route: 065
  6. VASOPRESSIN. [Interacting]
     Active Substance: VASOPRESSIN
     Indication: CIRCULATORY COLLAPSE
     Route: 065
  7. NOREPINEPHRINE. [Interacting]
     Active Substance: NOREPINEPHRINE
     Indication: CIRCULATORY COLLAPSE
     Dosage: 2 MICROG/KG/MIN
     Route: 065
  8. CHARCOAL [Interacting]
     Active Substance: ACTIVATED CHARCOAL
     Indication: CIRCULATORY COLLAPSE
     Route: 065

REACTIONS (9)
  - Cardiogenic shock [Unknown]
  - Toxicity to various agents [Unknown]
  - Circulatory collapse [Fatal]
  - Vasoplegia syndrome [Unknown]
  - Lactic acidosis [Fatal]
  - Overdose [Unknown]
  - Rhabdomyolysis [Unknown]
  - Cardiac arrest [Unknown]
  - Multiple organ dysfunction syndrome [Fatal]
